FAERS Safety Report 25640801 (Version 1)
Quarter: 2025Q3

REPORT INFORMATION
  Report Type: Report from Study
  Country: GB (occurrence: GB)
  Receive Date: 20250804
  Receipt Date: 20250804
  Transmission Date: 20251020
  Serious: Yes (Hospitalization)
  Sender: ABBVIE
  Company Number: GB-ABBVIE-6399254

PATIENT
  Sex: Female

DRUGS (1)
  1. SKYRIZI [Suspect]
     Active Substance: RISANKIZUMAB-RZAA
     Indication: Product used for unknown indication
     Route: 058

REACTIONS (6)
  - C-reactive protein increased [Unknown]
  - Anxiety [Unknown]
  - Abdominal distension [Unknown]
  - Heart rate increased [Unknown]
  - Headache [Unknown]
  - Panic reaction [Unknown]

NARRATIVE: CASE EVENT DATE: 20250726
